FAERS Safety Report 10090190 (Version 1)
Quarter: 2014Q2

REPORT INFORMATION
  Report Type: Spontaneous
  Country: US (occurrence: None)
  Receive Date: 20140409
  Receipt Date: 20140409
  Transmission Date: 20141212
  Serious: Yes (Other)
  Sender: FDA-Public Use
  Company Number: PHEH2013US026722

PATIENT
  Age: 37 Year
  Sex: Female
  Weight: 107.5 kg

DRUGS (5)
  1. SIGNIFOR (PASIREOTIDE) UNKNOWN [Suspect]
     Indication: PITUITARY-DEPENDENT CUSHING^S SYNDROME
     Route: 058
  2. CRESTOR (ROSUVASTATIN CALCIUM) [Concomitant]
  3. METFORMIN (METFORMIN) [Concomitant]
  4. LEXAPRO (ESCITALOFPRAM OXALATE) [Concomitant]
  5. SYNTHROID (LEVOTHYROXINE SODIUM) [Concomitant]

REACTIONS (2)
  - Weight decreased [None]
  - Glycosylated haemoglobin increased [None]
